FAERS Safety Report 19015115 (Version 1)
Quarter: 2021Q1

REPORT INFORMATION
  Report Type: Spontaneous
  Country: FR (occurrence: FR)
  Receive Date: 20210317
  Receipt Date: 20210317
  Transmission Date: 20210420
  Serious: Yes (Other)
  Sender: FDA-Public Use
  Company Number: FR-SA-2021SA078226

PATIENT
  Age: 70 Year
  Sex: Female

DRUGS (2)
  1. STILNOX [Suspect]
     Active Substance: ZOLPIDEM TARTRATE
     Dosage: 4 DF, QD (APPROXIMATELY 4 TABLETS PER DAY)
     Route: 048
     Dates: start: 20090831
  2. DOXYLAMINE SUCCINATE. [Suspect]
     Active Substance: DOXYLAMINE SUCCINATE
     Dosage: 2 DF, QD (APPROXIMATELY 2 TABLETS PER DAY)
     Route: 048
     Dates: start: 20100126

REACTIONS (1)
  - Drug dependence [Unknown]
